FAERS Safety Report 6305217-7 (Version None)
Quarter: 2009Q3

REPORT INFORMATION
  Report Type: 
  Country: None (occurrence: None)
  Receive Date: 20090811
  Receipt Date: 20090804
  Transmission Date: 20100115
  Serious: Yes (Hospitalization, Disabling)
  Sender: FDA-Public Use
  Company Number: US-KINGPHARMUSA00001-K200900656

PATIENT
  Age: 70 Year
  Sex: Male

DRUGS (11)
  1. ALTACE [Suspect]
     Indication: HYPERTENSION
     Dosage: 20 MG, QD
     Route: 048
     Dates: start: 20080710
  2. ALTACE [Suspect]
     Dosage: 2.5 MG, QD
     Route: 048
  3. ALTACE [Suspect]
     Dosage: 5 MG, QD
     Route: 048
     Dates: end: 20080130
  4. ALTACE [Suspect]
     Dosage: 10 MG, QD
     Route: 048
     Dates: start: 20080131, end: 20080416
  5. ALTACE [Suspect]
     Dosage: 15 MG, QD
     Route: 048
     Dates: start: 20080417, end: 20080709
  6. ACETYLSALICYLIC ACID [Suspect]
     Dosage: 325 MG, QD
     Route: 048
     Dates: end: 20081201
  7. ADALAT CC [Concomitant]
     Indication: HYPERTENSION
     Dosage: 30 MG, UNK
     Route: 048
     Dates: start: 20030101
  8. HYDROCHLOROTHIAZIDE [Concomitant]
     Indication: DIURETIC THERAPY
     Dosage: 25 MG, QD
     Route: 048
     Dates: start: 20030101
  9. ATENOLOL [Concomitant]
     Indication: HYPERTENSION
     Dosage: 50 MG, UNK
     Route: 048
     Dates: start: 20030101
  10. SERTRALINE [Concomitant]
     Indication: ANXIETY
     Dosage: 100 MG, UNK
     Route: 048
  11. LIPITOR [Concomitant]
     Indication: BLOOD CHOLESTEROL
     Dosage: 40 MG, UNK
     Route: 048
     Dates: start: 20030101

REACTIONS (3)
  - CEREBROVASCULAR ACCIDENT [None]
  - EXPRESSIVE LANGUAGE DISORDER [None]
  - PANIC ATTACK [None]
